FAERS Safety Report 7731747-7 (Version None)
Quarter: 2011Q3

REPORT INFORMATION
  Report Type: 
  Country: None (occurrence: None)
  Receive Date: 20110906
  Receipt Date: 20110629
  Transmission Date: 20111222
  Serious: No
  Sender: FDA-Public Use
  Company Number: US-AMGEN-USASP2011033305

PATIENT
  Age: 56 Year
  Sex: Female

DRUGS (8)
  1. TOPAMAX [Concomitant]
  2. RELPAX [Concomitant]
  3. PROPRANOLOL [Concomitant]
  4. PROLIA [Suspect]
     Indication: OSTEOLYSIS
     Dosage: UNK
     Dates: start: 20110201
  5. NEXIUM [Concomitant]
  6. NORTRIPTYLINE HCL [Concomitant]
     Dosage: UNK
  7. PROLIA [Suspect]
     Indication: BONE DISORDER
  8. VIVELLE [Concomitant]
     Dosage: UNK

REACTIONS (2)
  - PAIN [None]
  - BACK PAIN [None]
